FAERS Safety Report 11858277 (Version 13)
Quarter: 2017Q1

REPORT INFORMATION
  Report Type: Spontaneous
  Country: BR (occurrence: BR)
  Receive Date: 20151222
  Receipt Date: 20170324
  Transmission Date: 20170428
  Serious: Yes (Other)
  Sender: FDA-Public Use
  Company Number: BR-GLAXOSMITHKLINE-BR2015GSK179752

PATIENT
  Age: 50 Year
  Sex: Female
  Weight: 86 kg

DRUGS (10)
  1. BENLYSTA [Suspect]
     Active Substance: BELIMUMAB
     Dosage: UNK
     Dates: start: 20161027
  2. FLUOXETINE [Concomitant]
     Active Substance: FLUOXETINE HYDROCHLORIDE
     Indication: ANTIDEPRESSANT THERAPY
     Dosage: UNK
  3. BENLYSTA [Suspect]
     Active Substance: BELIMUMAB
     Dosage: UNK
     Dates: start: 20160818
  4. BENLYSTA [Suspect]
     Active Substance: BELIMUMAB
     Dosage: UNK
     Dates: start: 20160922
  5. BENLYSTA [Suspect]
     Active Substance: BELIMUMAB
     Indication: SYSTEMIC LUPUS ERYTHEMATOSUS
     Dosage: UNK
     Route: 042
     Dates: start: 20150409
  6. BENLYSTA [Suspect]
     Active Substance: BELIMUMAB
     Dosage: UNK
     Dates: start: 20170112
  7. BENLYSTA [Suspect]
     Active Substance: BELIMUMAB
     Dosage: UNK
     Dates: start: 20161201
  8. BENLYSTA [Suspect]
     Active Substance: BELIMUMAB
     Dosage: UNK
     Dates: start: 20170201
  9. BENLYSTA [Suspect]
     Active Substance: BELIMUMAB
     Dosage: UNK
     Dates: start: 20160714
  10. BENLYSTA [Suspect]
     Active Substance: BELIMUMAB
     Dosage: UNK
     Dates: start: 20170309

REACTIONS (20)
  - Diarrhoea [Unknown]
  - Respiratory disorder [Not Recovered/Not Resolved]
  - Systemic lupus erythematosus [Unknown]
  - Influenza [Not Recovered/Not Resolved]
  - Chest pain [Unknown]
  - Circumstance or information capable of leading to medication error [Not Recovered/Not Resolved]
  - Anaemia [Unknown]
  - Malaise [Unknown]
  - Emphysema [Unknown]
  - Pain in extremity [Unknown]
  - Oral pain [Unknown]
  - Inappropriate schedule of drug administration [Recovered/Resolved]
  - Vomiting [Unknown]
  - Nervousness [Unknown]
  - Dizziness [Recovered/Resolved]
  - Drug administration error [Recovered/Resolved]
  - Medication error [Recovered/Resolved]
  - Diabetes mellitus [Unknown]
  - Arthralgia [Unknown]
  - Pain [Unknown]

NARRATIVE: CASE EVENT DATE: 20160121
